FAERS Safety Report 9442378 (Version 1)
Quarter: 2013Q3

REPORT INFORMATION
  Report Type: Spontaneous
  Country: CA (occurrence: CA)
  Receive Date: 20130806
  Receipt Date: 20130806
  Transmission Date: 20140515
  Serious: Yes (Other)
  Sender: FDA-Public Use
  Company Number: CA-BAYER-2013-091754

PATIENT
  Age: 21 Year
  Sex: Female
  Weight: 59 kg

DRUGS (1)
  1. GADOVIST [Suspect]
     Dosage: 7.5 ML, ONCE
     Route: 042
     Dates: start: 20130729, end: 20130729

REACTIONS (6)
  - Dysphagia [Recovering/Resolving]
  - Nasal congestion [Recovering/Resolving]
  - Sneezing [Recovering/Resolving]
  - Urticaria [Recovering/Resolving]
  - Epistaxis [Recovering/Resolving]
  - Chest discomfort [Recovering/Resolving]
